FAERS Safety Report 11631009 (Version 1)
Quarter: 2015Q4

REPORT INFORMATION
  Report Type: Spontaneous
  Country: US (occurrence: US)
  Receive Date: 20151014
  Receipt Date: 20151014
  Transmission Date: 20160304
  Serious: No
  Sender: FDA-Public Use
  Company Number: US-INDIVIOR-RB-076135-2015

PATIENT
  Age: 26 Year
  Sex: Female

DRUGS (1)
  1. SUBOXONE [Suspect]
     Active Substance: BUPRENORPHINE HYDROCHLORIDE\NALOXONE HYDROCHLORIDE
     Indication: DRUG DEPENDENCE
     Dosage: 16 MG, DAILY
     Route: 060
     Dates: start: 2013, end: 2013

REACTIONS (6)
  - Glossodynia [Recovered/Resolved]
  - Swollen tongue [Recovered/Resolved]
  - Ear pruritus [Recovered/Resolved]
  - Lip pruritus [Recovered/Resolved]
  - Tongue discolouration [Recovered/Resolved]
  - Oral pruritus [Recovered/Resolved]

NARRATIVE: CASE EVENT DATE: 2013
